FAERS Safety Report 9758325 (Version 1)
Quarter: 2013Q4

REPORT INFORMATION
  Report Type: Spontaneous
  Country: US (occurrence: None)
  Receive Date: 20131213
  Receipt Date: 20131213
  Transmission Date: 20140711
  Serious: Yes (Life-Threatening, Hospitalization, Disabling)
  Sender: FDA-Public Use
  Company Number: None

PATIENT
  Age: 30 Year
  Sex: Female
  Weight: 48.99 kg

DRUGS (5)
  1. ORSYTHIA(LEVONRGESTREL) [Suspect]
     Route: 048
     Dates: start: 20120403, end: 20130910
  2. ETHINYL ESTRADIOL [Suspect]
     Route: 048
     Dates: start: 20120403, end: 20130910
  3. XARELTO [Concomitant]
  4. CLARITIN [Concomitant]
  5. TYLENOL [Concomitant]

REACTIONS (3)
  - Pulmonary embolism [None]
  - Deep vein thrombosis [None]
  - Pelvic venous thrombosis [None]
